FAERS Safety Report 6425461-8 (Version None)
Quarter: 2009Q4

REPORT INFORMATION
  Report Type: 
  Country: None (occurrence: None)
  Receive Date: 20091029
  Receipt Date: 20091019
  Transmission Date: 20100525
  Serious: Yes (Hospitalization)
  Sender: FDA-Public Use
  Company Number: CLOF-1000740

PATIENT
  Sex: Female

DRUGS (3)
  1. CLOLAR [Suspect]
     Indication: ACUTE MYELOID LEUKAEMIA
     Dosage: 22.5 MG/M2, QDX5 ON DAYS 2-6, INTRAVENOUS
     Route: 042
     Dates: start: 20090929, end: 20091003
  2. IDARUBICIN HCL [Suspect]
     Indication: ACUTE MYELOID LEUKAEMIA
     Dosage: 6 MG/M2, QDX3, ON DAYS 1-3 INTRAVENOUS
     Route: 042
     Dates: start: 20090928, end: 20090930
  3. CYTARABINE [Suspect]
     Indication: ACUTE MYELOID LEUKAEMIA
     Dosage: 0.75 G/M2, QDX5, ON DAYS 1-5, UNK
     Dates: start: 20090928, end: 20091002

REACTIONS (10)
  - ALPHA HAEMOLYTIC STREPTOCOCCAL INFECTION [None]
  - COUGH [None]
  - DYSPNOEA [None]
  - INFECTION [None]
  - LUNG INFILTRATION [None]
  - NEUTROPHIL COUNT ABNORMAL [None]
  - PNEUMONITIS [None]
  - POSTNASAL DRIP [None]
  - PULMONARY OEDEMA [None]
  - RESPIRATORY DISTRESS [None]
